FAERS Safety Report 9300820 (Version 2)
Quarter: 2013Q3

REPORT INFORMATION
  Report Type: Spontaneous
  Country: DE (occurrence: DE)
  Receive Date: 20130521
  Receipt Date: 20130923
  Transmission Date: 20140515
  Serious: Yes (Hospitalization)
  Sender: FDA-Public Use
  Company Number: PHHY2013DE049076

PATIENT
  Age: 61 Year
  Sex: Male

DRUGS (8)
  1. CO-DIOVAN [Suspect]
     Indication: HYPERTENSION
     Route: 048
  2. DIOVAN [Suspect]
     Indication: HYPERTENSION
  3. CLINDAMYCIN [Suspect]
     Dosage: UNK UKN, UNK
     Route: 048
     Dates: start: 20130113, end: 20130113
  4. CEFUROXIME [Suspect]
     Dosage: UNK UKN, UNK
     Route: 042
     Dates: start: 20130113, end: 20130114
  5. TAUROLIN RINGER [Suspect]
     Indication: WOUND TREATMENT
     Dates: start: 20130111
  6. BELOC ZOK [Suspect]
     Indication: HYPERTENSION
     Route: 048
  7. CIPROBAY [Suspect]
     Route: 048
     Dates: start: 20130111, end: 20130112
  8. TAZOBAC [Suspect]
     Indication: EMPYEMA
     Route: 042
     Dates: start: 20130111, end: 20130113

REACTIONS (8)
  - Toxic epidermal necrolysis [Recovering/Resolving]
  - Rash maculo-papular [Recovering/Resolving]
  - Blister [Recovering/Resolving]
  - Rash pruritic [Recovering/Resolving]
  - Rash [Recovering/Resolving]
  - Enanthema [Recovering/Resolving]
  - Rash macular [Recovering/Resolving]
  - Hypersensitivity vasculitis [Unknown]
